FAERS Safety Report 4525480-2 (Version None)
Quarter: 2004Q4

REPORT INFORMATION
  Report Type: 
  Country: None (occurrence: None)
  Receive Date: 20041116
  Receipt Date: 20040820
  Transmission Date: 20050328
  Serious: No
  Sender: FDA-Public Use
  Company Number: S04-USA-05820-01

PATIENT
  Sex: Female

DRUGS (2)
  1. NAMENDA [Suspect]
     Indication: CYSTITIS INTERSTITIAL
  2. NAMENDA [Suspect]
     Indication: PAIN

REACTIONS (1)
  - PSYCHOMOTOR HYPERACTIVITY [None]
